FAERS Safety Report 8426290-6 (Version None)
Quarter: 2012Q2

REPORT INFORMATION
  Report Type: 
  Country: None (occurrence: None)
  Receive Date: 20120323
  Receipt Date: 20110520
  Transmission Date: 20120825
  Serious: Yes (Hospitalization, Other)
  Sender: FDA-Public Use
  Company Number: 163-21880-11043276

PATIENT
  Age: 67 Year
  Sex: Female
  Weight: 86.1834 kg

DRUGS (26)
  1. RESTORIL [Concomitant]
  2. ZYRTEC [Concomitant]
  3. ACYCLOVIR [Concomitant]
  4. COUMADIN [Concomitant]
  5. FLUCONAZOLE [Concomitant]
  6. FLUVIRIN (INFLUENZA VIRUS VACCINE POLYVALENT) [Concomitant]
  7. AREDIA [Concomitant]
  8. SODIUM CHLORIDE 0.9% [Concomitant]
  9. DESOXIMETASONE (DESOXIMETASONE) [Concomitant]
  10. FLORINEF [Concomitant]
  11. VISINE (TETRYZOLINE HYDROCHLORIDE) [Concomitant]
  12. VICODIN [Concomitant]
  13. ZOCOR [Concomitant]
  14. SODIUM CHLORIDE [Concomitant]
  15. TEMAZEPAM [Concomitant]
  16. ATIVAN [Concomitant]
  17. LEXAPRO [Concomitant]
  18. PREVACID [Concomitant]
  19. SIMVASTATIN [Concomitant]
  20. REVLIMID [Suspect]
     Indication: MULTIPLE MYELOMA
     Dosage: 10 MG, DAILY X 21 DAYS/OFF 7 DAYS, PO ; 5 MG, 1 IN 1 D, PO
     Route: 048
     Dates: start: 20110101
  21. REVLIMID [Suspect]
     Indication: MULTIPLE MYELOMA
     Dosage: 10 MG, DAILY X 21 DAYS/OFF 7 DAYS, PO ; 5 MG, 1 IN 1 D, PO
     Route: 048
     Dates: start: 20100726
  22. ASPIRIN [Concomitant]
  23. IPRATROPIUM BROMIDE [Concomitant]
  24. COLTRIZINE HCL (ALL OTHER THERAPEUTIC PRODUCTS) [Concomitant]
  25. LORAZEPAM [Concomitant]
  26. FLUDROCORTISONE ACETATE [Concomitant]

REACTIONS (3)
  - PNEUMONIA [None]
  - NEUTROPHIL COUNT DECREASED [None]
  - BLOOD CREATININE INCREASED [None]
